FAERS Safety Report 21067834 (Version 2)
Quarter: 2023Q2

REPORT INFORMATION
  Report Type: Other
  Country: US (occurrence: None)
  Receive Date: 20220712
  Receipt Date: 20230421
  Transmission Date: 20230722
  Serious: Yes (Death, Hospitalization)
  Sender: FDA-Public Use
  Company Number: US-ROCHE-3134664

PATIENT
  Age: 75 Year
  Sex: Female

DRUGS (3)
  1. XELODA [Suspect]
     Active Substance: CAPECITABINE
     Indication: Breast cancer metastatic
     Dosage: TAKE 3 TABLETS BY MOUTH TWICE A DAY 2 WEEK ON, 1 WEEK OFF OF EACH 21 DAY CYCLE WITH 1 OTHER
     Route: 048
  2. XELODA [Suspect]
     Active Substance: CAPECITABINE
     Indication: Breast cancer female
     Dosage: 500MG TABLETS?TAKE 2000MG BID 14 DAYS
     Route: 048
  3. XELODA [Suspect]
     Active Substance: CAPECITABINE
     Indication: Metastases to lung

REACTIONS (3)
  - Brain neoplasm malignant [Unknown]
  - Drug ineffective [Unknown]
  - Death [Fatal]
